FAERS Safety Report 5132947-5 (Version None)
Quarter: 2006Q4

REPORT INFORMATION
  Report Type: 
  Country: None (occurrence: None)
  Receive Date: 20061019
  Receipt Date: 20061019
  Transmission Date: 20070319
  Serious: No
  Sender: FDA-Public Use
  Company Number: None

PATIENT
  Age: 44 Year
  Sex: Female
  Weight: 58.0604 kg

DRUGS (1)
  1. REMODULIN [Suspect]
     Indication: PULMONARY HYPERTENSION
     Dosage: 72 NG/KG/MIN SQ
     Route: 058

REACTIONS (9)
  - BACK PAIN [None]
  - CARDIOGENIC SHOCK [None]
  - INFUSION SITE HAEMORRHAGE [None]
  - INFUSION SITE PAIN [None]
  - INFUSION SITE REACTION [None]
  - INFUSION SITE SWELLING [None]
  - PURULENCE [None]
  - THYROIDITIS [None]
  - WEIGHT DECREASED [None]
